FAERS Safety Report 8371719-5 (Version None)
Quarter: 2012Q2

REPORT INFORMATION
  Report Type: 
  Country: None (occurrence: None)
  Receive Date: 20120518
  Receipt Date: 20120508
  Transmission Date: 20120825
  Serious: Yes (Other)
  Sender: FDA-Public Use
  Company Number: AE-ELI_LILLY_AND_COMPANY-AE201205004205

PATIENT
  Sex: Male

DRUGS (1)
  1. BYDUREON [Suspect]
     Indication: DIABETES MELLITUS
     Dosage: 2 MG, UNKNOWN
     Route: 058
     Dates: start: 20120506

REACTIONS (3)
  - DIZZINESS [None]
  - IRON DEFICIENCY ANAEMIA [None]
  - DYSPNOEA [None]
